FAERS Safety Report 8137345-8 (Version None)
Quarter: 2012Q1

REPORT INFORMATION
  Report Type: 
  Country: None (occurrence: None)
  Receive Date: 20120103
  Receipt Date: 20111029
  Transmission Date: 20120608
  Serious: No
  Sender: FDA-Public Use
  Company Number: AE-2011-002301

PATIENT
  Age: 59 Year
  Sex: Male
  Weight: 67.1324 kg

DRUGS (16)
  1. RIBAVIRIN [Concomitant]
  2. GLIPIZIDE ER (GLIPIZIDE) [Concomitant]
  3. WARFARIN SODIUM [Concomitant]
  4. MULTIVITAMIN [Concomitant]
  5. FOLIC ACID WITH DHA (FOLIC ACID) [Concomitant]
  6. CALCIUM PLUS VITAMIN D (CALCIUM WITH VITAMIN D) [Concomitant]
  7. LOSARTAN POTASSIUM [Concomitant]
  8. INCIVEK [Suspect]
     Dosage: 2250 MG (750 MG, 1 IN 8 HR), ORAL
     Route: 048
     Dates: start: 20111001
  9. METFORMIN HCL [Concomitant]
  10. ATENOLOL [Concomitant]
  11. HYDROCHLOROTHIAZIDE [Concomitant]
  12. ASCORBIC ACID [Concomitant]
  13. PEGINTERFERON (PEGINTERFERON ALFA-2A) [Concomitant]
  14. DIGOXIN [Concomitant]
  15. FISH OIL (FISH OIL) [Concomitant]
  16. NIACIN [Concomitant]

REACTIONS (6)
  - DIARRHOEA [None]
  - WEIGHT DECREASED [None]
  - NAUSEA [None]
  - HAEMORRHOIDS [None]
  - DRUG DOSE OMISSION [None]
  - ASTHENIA [None]
